FAERS Safety Report 8432517-7 (Version None)
Quarter: 2012Q2

REPORT INFORMATION
  Report Type: 
  Country: None (occurrence: None)
  Receive Date: 20120613
  Receipt Date: 20120611
  Transmission Date: 20120825
  Serious: Yes (Hospitalization)
  Sender: FDA-Public Use
  Company Number: PHHY2012IN049859

PATIENT
  Age: 50 Year
  Sex: Male

DRUGS (2)
  1. AFINITOR [Suspect]
     Dosage: 10 MG, DAILY
     Route: 048
  2. SANDOSTATIN LAR [Suspect]
     Dosage: 30 MG, ONCE IN 28 DAYS
     Route: 030

REACTIONS (3)
  - NAUSEA [None]
  - HYPOTENSION [None]
  - ASTHENIA [None]
